FAERS Safety Report 12751613 (Version 1)
Quarter: 2016Q3

REPORT INFORMATION
  Report Type: Spontaneous
  Country: US (occurrence: US)
  Receive Date: 20160916
  Receipt Date: 20160916
  Transmission Date: 20161109
  Serious: Yes (Other)
  Sender: FDA-Public Use
  Company Number: None

PATIENT
  Age: 74 Year
  Weight: 97.52 kg

DRUGS (12)
  1. ROPINEROLE HCL [Concomitant]
  2. DILTIAZEM. [Concomitant]
     Active Substance: DILTIAZEM
  3. GLUCOSAMINE [Concomitant]
     Active Substance: GLUCOSAMINE
  4. ATORVASTATIN [Concomitant]
     Active Substance: ATORVASTATIN
  5. DIOVAN [Concomitant]
     Active Substance: VALSARTAN
  6. FUROSEMIDE. [Concomitant]
     Active Substance: FUROSEMIDE
  7. CALCIUM/VIT D [Concomitant]
  8. KLOR-CON [Concomitant]
     Active Substance: POTASSIUM CHLORIDE
  9. IMIQUIMOD CREAM 5% [Suspect]
     Active Substance: IMIQUIMOD
     Indication: SKIN CANCER
     Dosage: SMALL AMOUNT OF CREAM DAILY ON SKIN
     Route: 061
     Dates: start: 20160701, end: 20160706
  10. PRADAXA [Concomitant]
     Active Substance: DABIGATRAN ETEXILATE MESYLATE
  11. INFLAMYER [Concomitant]
  12. MULTI VIT/MINERAL [Concomitant]

REACTIONS (1)
  - Atrial fibrillation [None]

NARRATIVE: CASE EVENT DATE: 20160704
